FAERS Safety Report 12124521 (Version 1)
Quarter: 2016Q1

REPORT INFORMATION
  Report Type: Spontaneous
  Country: FR (occurrence: FR)
  Receive Date: 20160229
  Receipt Date: 20160229
  Transmission Date: 20160526
  Serious: Yes (Hospitalization)
  Sender: FDA-Public Use
  Company Number: FR-NOVOPROD-481197

PATIENT
  Age: 25 Year
  Sex: Female

DRUGS (9)
  1. LANTUS [Suspect]
     Active Substance: INSULIN GLARGINE
     Dosage: 20 U, QD
     Route: 058
     Dates: start: 20151007, end: 20151007
  2. NOVORAPID [Suspect]
     Active Substance: INSULIN ASPART
     Dosage: 20 U, QD
     Route: 058
     Dates: start: 20151007, end: 20151007
  3. NOVORAPID [Suspect]
     Active Substance: INSULIN ASPART
     Dosage: 4 U, TID
     Route: 058
     Dates: start: 20151008
  4. IBUPROFENE [Concomitant]
     Active Substance: IBUPROFEN
     Dosage: 3 TAB, QD
     Route: 048
     Dates: start: 20151003, end: 20151008
  5. LANTUS [Suspect]
     Active Substance: INSULIN GLARGINE
     Indication: TYPE 2 DIABETES MELLITUS
     Dosage: UNK
     Route: 058
  6. NOVORAPID [Suspect]
     Active Substance: INSULIN ASPART
     Indication: TYPE 2 DIABETES MELLITUS
     Dosage: UNK
     Route: 058
  7. LOVENOX [Concomitant]
     Active Substance: ENOXAPARIN SODIUM
     Dosage: 1 DF, QD
     Route: 058
     Dates: start: 20151006, end: 20151017
  8. TARDYFERON B9                      /00023601/ [Concomitant]
     Active Substance: FERROUS SULFATE\FOLIC ACID
     Dosage: 1 DF, QD
     Route: 048
     Dates: start: 20151003, end: 20151103
  9. LANTUS [Suspect]
     Active Substance: INSULIN GLARGINE
     Dosage: 8 IU IN EVENING
     Route: 058
     Dates: start: 20151008

REACTIONS (2)
  - Hypoglycaemia [Recovered/Resolved]
  - Seizure [Recovered/Resolved]

NARRATIVE: CASE EVENT DATE: 20151007
